FAERS Safety Report 16989809 (Version 1)
Quarter: 2019Q4

REPORT INFORMATION
  Report Type: Spontaneous
  Country: US (occurrence: US)
  Receive Date: 20191104
  Receipt Date: 20191104
  Transmission Date: 20200122
  Serious: Yes (Other)
  Sender: FDA-Public Use
  Company Number: US-ELI_LILLY_AND_COMPANY-US201910012687

PATIENT
  Sex: Female

DRUGS (1)
  1. BASAGLAR [Suspect]
     Active Substance: INSULIN GLARGINE
     Indication: DIABETES MELLITUS
     Dosage: 25 U, DAILY
     Route: 065

REACTIONS (8)
  - Wrong technique in product usage process [Unknown]
  - Asthenia [Unknown]
  - Blood glucose increased [Unknown]
  - Arthropathy [Unknown]
  - Somnolence [Unknown]
  - Incorrect dose administered [Unknown]
  - Confusional state [Unknown]
  - Fatigue [Unknown]
